FAERS Safety Report 5233725-9 (Version None)
Quarter: 2007Q1

REPORT INFORMATION
  Report Type: 
  Country: None (occurrence: None)
  Receive Date: 20061208
  Receipt Date: 20060320
  Transmission Date: 20070707
  Serious: Yes (Other)
  Sender: FDA-Public Use
  Company Number: 2006UW04804

PATIENT
  Age: 80 Year
  Sex: Female
  Weight: 56.699 kg

DRUGS (9)
  1. CRESTOR [Suspect]
     Indication: BLOOD CHOLESTEROL INCREASED
     Dosage: 5 MG PO
     Route: 048
     Dates: start: 20060201
  2. CLONIDINE [Concomitant]
  3. SYNTHROID [Concomitant]
  4. ASPIRIN [Concomitant]
  5. ENALAPRIL MALEATE [Concomitant]
  6. OXYBUTYNIN [Concomitant]
  7. METOPROLOL SUCCINATE [Concomitant]
  8. CALCIUM [Concomitant]
  9. VITAMIN CAP [Concomitant]

REACTIONS (2)
  - EYE DISORDER [None]
  - PAIN IN EXTREMITY [None]
